FAERS Safety Report 5216079-3 (Version None)
Quarter: 2007Q1

REPORT INFORMATION
  Report Type: 
  Country: None (occurrence: None)
  Receive Date: 20070123
  Receipt Date: 20070113
  Transmission Date: 20070707
  Serious: Yes (Other)
  Sender: FDA-Public Use
  Company Number: US-PFIZER INC-2006139854

PATIENT
  Sex: Female
  Weight: 106.6 kg

DRUGS (8)
  1. CHANTIX [Suspect]
     Indication: SMOKING CESSATION THERAPY
     Route: 048
     Dates: start: 20060901, end: 20061110
  2. METFORMIN/PIOGLITAZONE [Concomitant]
     Route: 048
  3. DEMADEX [Concomitant]
     Route: 048
  4. ALL OTHER THERAPEUTIC PRODUCTS [Concomitant]
     Route: 048
  5. COLCHICINE [Concomitant]
     Route: 048
  6. ELAVIL [Concomitant]
     Route: 048
  7. MIRAPEX [Concomitant]
     Route: 048
  8. TROSPIUM CHLORIDE [Concomitant]

REACTIONS (6)
  - ALTERED VISUAL DEPTH PERCEPTION [None]
  - CATARACT [None]
  - PHOTOPHOBIA [None]
  - VISION BLURRED [None]
  - VISUAL DISTURBANCE [None]
  - WEIGHT INCREASED [None]
